FAERS Safety Report 6999335-8 (Version None)
Quarter: 2010Q3

REPORT INFORMATION
  Report Type: 
  Country: None (occurrence: None)
  Receive Date: 20100920
  Receipt Date: 20100311
  Transmission Date: 20110219
  Serious: Yes (Other)
  Sender: FDA-Public Use
  Company Number: US-ASTRAZENECA-2008UW27115

PATIENT
  Age: 20114 Day
  Sex: Female
  Weight: 63.5 kg

DRUGS (12)
  1. SEROQUEL [Suspect]
     Indication: DEPRESSION
     Route: 048
     Dates: start: 20020101, end: 20060502
  2. SEROQUEL [Suspect]
     Indication: BIPOLAR DISORDER
     Route: 048
     Dates: start: 20020101, end: 20060502
  3. SEROQUEL [Suspect]
     Indication: SCHIZOPHRENIA
     Route: 048
     Dates: start: 20020101, end: 20060502
  4. SEROQUEL [Suspect]
     Route: 048
     Dates: start: 20040101
  5. SEROQUEL [Suspect]
     Route: 048
     Dates: start: 20040101
  6. SEROQUEL [Suspect]
     Route: 048
     Dates: start: 20040101
  7. GEODON [Concomitant]
     Dates: start: 20030101
  8. CYMBALTA [Concomitant]
     Dates: start: 20030101
  9. PHENPERMINE [Concomitant]
     Dates: start: 20050101
  10. ELAVIL [Concomitant]
     Dates: start: 20040101
  11. WELLBUTRIN [Concomitant]
     Dates: start: 20040101
  12. NEURONTIN [Concomitant]
     Dates: start: 20040101

REACTIONS (7)
  - BLOOD CHOLESTEROL INCREASED [None]
  - BLOOD TRIGLYCERIDES INCREASED [None]
  - DIABETES MELLITUS [None]
  - KETOACIDOSIS [None]
  - OBESITY [None]
  - PANCREATITIS [None]
  - WEIGHT INCREASED [None]
